FAERS Safety Report 6740822-5 (Version None)
Quarter: 2010Q2

REPORT INFORMATION
  Report Type: 
  Country: None (occurrence: None)
  Receive Date: 20100525
  Receipt Date: 20100525
  Transmission Date: 20101027
  Serious: Yes (Other)
  Sender: FDA-Public Use
  Company Number: None

PATIENT
  Age: 28 Year
  Sex: Female
  Weight: 52.1637 kg

DRUGS (1)
  1. CYMBALTA [Suspect]
     Indication: DEPRESSION
     Dosage: 120MG 2 PILLS DAILY PO
     Route: 048
     Dates: start: 20100101, end: 20100512

REACTIONS (5)
  - ABDOMINAL PAIN UPPER [None]
  - AFFECT LABILITY [None]
  - MUSCLE TWITCHING [None]
  - PARAESTHESIA [None]
  - SUICIDAL IDEATION [None]
